FAERS Safety Report 12168233 (Version 2)
Quarter: 2016Q1

REPORT INFORMATION
  Report Type: Spontaneous
  Country: US (occurrence: US)
  Receive Date: 20160310
  Receipt Date: 20160325
  Transmission Date: 20160526
  Serious: No
  Sender: FDA-Public Use
  Company Number: US-PFIZER INC-2016003283

PATIENT
  Sex: Female

DRUGS (1)
  1. PRISTIQ EXTENDED RELEASE [Suspect]
     Active Substance: DESVENLAFAXINE SUCCINATE
     Dosage: 50 MG, 1X/DAY
     Route: 048

REACTIONS (6)
  - Dizziness [Unknown]
  - Crying [Unknown]
  - Fear [Not Recovered/Not Resolved]
  - Vertigo [Unknown]
  - Drug withdrawal syndrome [Unknown]
  - Depressed mood [Unknown]
